FAERS Safety Report 24661330 (Version 1)
Quarter: 2024Q4

REPORT INFORMATION
  Report Type: Spontaneous
  Country: FR (occurrence: FR)
  Receive Date: 20241125
  Receipt Date: 20241125
  Transmission Date: 20250114
  Serious: Yes (Other)
  Sender: ORGANON
  Company Number: None

PATIENT
  Age: 25 Year
  Sex: Female
  Weight: 62 kg

DRUGS (1)
  1. NEXPLANON [Suspect]
     Active Substance: ETONOGESTREL
     Indication: Contraception
     Dosage: 1 IMPLANT (68 MG)
     Route: 050
     Dates: start: 20240515, end: 20240601

REACTIONS (7)
  - Suicidal ideation [Recovered/Resolved]
  - Weight decreased [Recovered/Resolved]
  - Anxiety [Not Recovered/Not Resolved]
  - Palpitations [Recovered/Resolved]
  - Headache [Recovered/Resolved]
  - Decreased appetite [Recovered/Resolved]
  - Depression [Recovered/Resolved]

NARRATIVE: CASE EVENT DATE: 20240520
